FAERS Safety Report 14775485 (Version 3)
Quarter: 2021Q4

REPORT INFORMATION
  Report Type: Spontaneous
  Country: ES (occurrence: ES)
  Receive Date: 20180418
  Receipt Date: 20211004
  Transmission Date: 20220303
  Serious: Yes (Hospitalization)
  Sender: FDA-Public Use
  Company Number: None

PATIENT
  Age: 84 Year
  Sex: Female

DRUGS (14)
  1. LINEZOLID [Suspect]
     Active Substance: LINEZOLID
     Dosage: 600 MG, 2X/DAY (EACH 12H)
     Route: 042
     Dates: start: 20161228, end: 20161230
  2. DULOXETINE [Suspect]
     Active Substance: DULOXETINE
     Indication: Depression
     Dosage: 30 MG, DAILY (EVERY 24 HOURS)
     Dates: start: 20141013, end: 20161230
  3. FENTANYL [Suspect]
     Active Substance: FENTANYL
     Indication: Back pain
     Dosage: 25 UG (1 PATCH), DAILY (EVERY 24H)
     Route: 062
     Dates: start: 20161227, end: 20161230
  4. LORAZEPAM [Concomitant]
     Active Substance: LORAZEPAM
     Dosage: 1 MG, DAILY (EVERY 24 HOURS)
     Dates: start: 20161228, end: 20161230
  5. OMEPRAZOLE [Concomitant]
     Active Substance: OMEPRAZOLE
     Dosage: 20 MG, DAILY (EVERY 24 HOURS)
     Dates: start: 20161228, end: 20161230
  6. FUROSEMIDE [Concomitant]
     Active Substance: FUROSEMIDE
     Dosage: 20 MG, 2X/DAY (EACH 12H)
     Dates: start: 20161228, end: 20170107
  7. ATORVASTATIN [Concomitant]
     Active Substance: ATORVASTATIN
     Dosage: 40 MG, DAILY (EVERY 24 HOURS)
     Dates: start: 20161228, end: 20170107
  8. ASPIRIN [Concomitant]
     Active Substance: ASPIRIN
     Dosage: 100 MG, DAILY (EVERY 24 HOURS)
     Dates: start: 20161228, end: 20170107
  9. AMLODIPINE [Concomitant]
     Active Substance: AMLODIPINE BESYLATE
     Dosage: 5 MG, DAILY (5 MG EVERY 24 HOURS)
     Dates: start: 20161228, end: 20170107
  10. ENOXAPARIN [Concomitant]
     Active Substance: ENOXAPARIN
     Dosage: 60 MG, 2X/DAY (EACH 12H)
     Dates: start: 20161228, end: 20170107
  11. ACETAMINOPHEN [Concomitant]
     Active Substance: ACETAMINOPHEN
     Dosage: 1 G, 3X/DAY (EACH 8H)
     Dates: start: 20161228, end: 20170107
  12. LEVOTHYROXINE [Concomitant]
     Active Substance: LEVOTHYROXINE
     Dosage: 50 UG, DAILY (EVERY 24 HOURS)
     Dates: start: 20161228, end: 20161230
  13. MEROPENEM [Concomitant]
     Active Substance: MEROPENEM
     Dosage: 1 GR, 3X/DAY (EACH 8H)
     Dates: start: 20161228, end: 20170107
  14. AZATHIOPRINE [Concomitant]
     Active Substance: AZATHIOPRINE
     Dosage: 100 MG, DAILY (EVERY 24 HOURS)
     Dates: start: 20161228, end: 20170107

REACTIONS (1)
  - Serotonin syndrome [Recovered/Resolved]

NARRATIVE: CASE EVENT DATE: 20161229
